FAERS Safety Report 7717532-0 (Version None)
Quarter: 2011Q3

REPORT INFORMATION
  Report Type: 
  Country: None (occurrence: None)
  Receive Date: 20110830
  Receipt Date: 20110817
  Transmission Date: 20111222
  Serious: Yes (Hospitalization, Other)
  Sender: FDA-Public Use
  Company Number: FR-ELI_LILLY_AND_COMPANY-FR201107000614

PATIENT
  Age: 51 Year
  Sex: Female

DRUGS (4)
  1. BETASERON [Concomitant]
     Dosage: UNK
  2. MIRTAZAPINE [Concomitant]
  3. TERCIAN [Concomitant]
     Dosage: UNK
  4. FORTEO [Suspect]
     Indication: OSTEOPOROSIS
     Dosage: 20 UG, QD
     Route: 058
     Dates: start: 20100604

REACTIONS (2)
  - MULTIPLE SCLEROSIS RELAPSE [None]
  - SQUAMOUS CELL CARCINOMA [None]
